FAERS Safety Report 5779162-X (Version None)
Quarter: 2008Q2

REPORT INFORMATION
  Report Type: 
  Country: None (occurrence: None)
  Receive Date: 20080616
  Receipt Date: 20071015
  Transmission Date: 20081010
  Serious: Yes (Other)
  Sender: FDA-Public Use
  Company Number: WWISSUE-119

PATIENT
  Sex: Male

DRUGS (4)
  1. PROPOXYPHENE CAPSULES, 65 MG [Suspect]
     Indication: PAIN
  2. PROPOXYPHENE COMPOUND 65 [Suspect]
  3. PROPOXYPHENE COMPOUND 65 CAP [Suspect]
  4. PROPOXYPHENE COMPOUND 65 [Suspect]

REACTIONS (1)
  - DRUG INEFFECTIVE [None]
